FAERS Safety Report 7374149-8 (Version None)
Quarter: 2011Q1

REPORT INFORMATION
  Report Type: 
  Country: None (occurrence: None)
  Receive Date: 20110325
  Receipt Date: 20110228
  Transmission Date: 20110831
  Serious: No
  Sender: FDA-Public Use
  Company Number: US-B.I. PHARMACEUTICALS,INC./RIDGEFIELD-2011-BP-02330BP

PATIENT
  Sex: Female

DRUGS (3)
  1. HYDROCHLOROTHIAZIDE [Concomitant]
     Indication: OEDEMA PERIPHERAL
  2. COMBIVENT [Suspect]
     Indication: DYSPNOEA
     Route: 055
     Dates: start: 20090101
  3. DIGOXIN [Concomitant]
     Indication: CARDIAC MURMUR

REACTIONS (6)
  - NERVOUSNESS [None]
  - MEMORY IMPAIRMENT [None]
  - DRUG INEFFECTIVE [None]
  - FEELING ABNORMAL [None]
  - FATIGUE [None]
  - RASH [None]
